FAERS Safety Report 5620556-0 (Version None)
Quarter: 2008Q1

REPORT INFORMATION
  Report Type: 
  Country: None (occurrence: None)
  Receive Date: 20080208
  Receipt Date: 20080201
  Transmission Date: 20080703
  Serious: Yes (Hospitalization)
  Sender: FDA-Public Use
  Company Number: IT-BAYER-200812503GPV

PATIENT
  Age: 64 Year
  Sex: Male

DRUGS (3)
  1. ACETYLSALICYLIC ACID SRT [Suspect]
     Indication: ANTICOAGULANT THERAPY
     Dosage: TOTAL DAILY DOSE: 100 MG  UNIT DOSE: 100 MG
     Route: 048
     Dates: start: 20040201, end: 20080128
  2. TRIATEC (SIMVASTATIN) [Concomitant]
     Indication: HYPERTENSION
     Route: 048
     Dates: start: 20040201, end: 20080128
  3. SINVACOR (RAMIPRIL) [Concomitant]
     Indication: DRUG USE FOR UNKNOWN INDICATION
     Route: 048
     Dates: start: 20040201, end: 20080128

REACTIONS (1)
  - GASTRITIS EROSIVE [None]
